FAERS Safety Report 4697658-9 (Version None)
Quarter: 2005Q2

REPORT INFORMATION
  Report Type: 
  Country: None (occurrence: None)
  Receive Date: 20050620
  Receipt Date: 20040922
  Transmission Date: 20051028
  Serious: Yes (Hospitalization)
  Sender: FDA-Public Use
  Company Number: 200417226US

PATIENT

DRUGS (2)
  1. LANTUS [Suspect]
  2. LENTE [Suspect]
     Dosage: 50 U QD SC
     Route: 058

REACTIONS (1)
  - BLOOD GLUCOSE DECREASED [None]
